FAERS Safety Report 7431180-1 (Version None)
Quarter: 2011Q2

REPORT INFORMATION
  Report Type: 
  Country: None (occurrence: None)
  Receive Date: 20110421
  Receipt Date: 20110420
  Transmission Date: 20111010
  Serious: Yes (Other)
  Sender: FDA-Public Use
  Company Number: CA-ABBOTT-11P-028-0720003-00

PATIENT
  Sex: Male
  Weight: 61.29 kg

DRUGS (2)
  1. HUMIRA [Suspect]
     Indication: CROHN'S DISEASE
     Dates: start: 20100611
  2. FENTANYL-100 [Concomitant]
     Indication: PAIN
     Route: 062

REACTIONS (1)
  - HAEMOGLOBIN DECREASED [None]
